FAERS Safety Report 13937338 (Version 2)
Quarter: 2018Q1

REPORT INFORMATION
  Report Type: Spontaneous
  Country: US (occurrence: US)
  Receive Date: 20170905
  Receipt Date: 20180111
  Transmission Date: 20180508
  Serious: Yes (Hospitalization)
  Sender: FDA-Public Use
  Company Number: US-DSJP-DSU-2017-134863

PATIENT

DRUGS (4)
  1. BENICAR HCT [Suspect]
     Active Substance: HYDROCHLOROTHIAZIDE\OLMESARTAN MEDOXOMIL
     Dosage: 20-12.5 MG UNK
     Dates: start: 20071101, end: 20160324
  2. TRIBENZOR [Suspect]
     Active Substance: AMLODIPINE BESYLATE\HYDROCHLOROTHIAZIDE\OLMESARTAN MEDOXOMIL
     Indication: PRODUCT USED FOR UNKNOWN INDICATION
     Dosage: 20-5-12.5 MG, UNK
     Dates: start: 20071101, end: 20160324
  3. BENICAR HCT [Suspect]
     Active Substance: HYDROCHLOROTHIAZIDE\OLMESARTAN MEDOXOMIL
     Indication: PRODUCT USED FOR UNKNOWN INDICATION
     Dosage: 40-12.5 MG, UNK
     Dates: start: 20071101, end: 20160324
  4. TRIBENZOR [Suspect]
     Active Substance: AMLODIPINE BESYLATE\HYDROCHLOROTHIAZIDE\OLMESARTAN MEDOXOMIL
     Dosage: 40-10-25 MG, UNK
     Dates: start: 20071101, end: 20160324

REACTIONS (5)
  - Sepsis [Recovered/Resolved]
  - Clostridium difficile colitis [Recovered/Resolved]
  - Acute kidney injury [Recovering/Resolving]
  - Hypotension [Unknown]
  - Weight decreased [Unknown]

NARRATIVE: CASE EVENT DATE: 20160104
